FAERS Safety Report 22334129 (Version 1)
Quarter: 2023Q2

REPORT INFORMATION
  Report Type: Spontaneous
  Country: US (occurrence: None)
  Receive Date: 20230517
  Receipt Date: 20230517
  Transmission Date: 20230722
  Serious: No
  Sender: FDA-Public Use
  Company Number: 2023A114943

PATIENT

DRUGS (1)
  1. BREZTRI [Suspect]
     Active Substance: BUDESONIDE\FORMOTEROL\GLYCOPYRROLATE
     Dosage: 160 MCG/9MCG/4.8 MCG, 2 HITS
     Route: 055

REACTIONS (4)
  - Dyspnoea [Unknown]
  - Product cleaning inadequate [Unknown]
  - Device use issue [Unknown]
  - Incorrect dose administered by device [Unknown]
